FAERS Safety Report 5655006-1 (Version None)
Quarter: 2008Q1

REPORT INFORMATION
  Report Type: 
  Country: None (occurrence: None)
  Receive Date: 20080307
  Receipt Date: 20071031
  Transmission Date: 20080703
  Serious: No
  Sender: FDA-Public Use
  Company Number: A0688493A

PATIENT
  Age: 80 Year
  Sex: Male

DRUGS (9)
  1. REQUIP [Suspect]
     Indication: RESTLESS LEGS SYNDROME
     Dosage: 4MG PER DAY
     Route: 048
     Dates: start: 20070801
  2. IMPRAMINE HCL [Concomitant]
     Indication: RESTLESS LEGS SYNDROME
     Dates: start: 20071018
  3. BUSPAR [Concomitant]
  4. OXYBUTYNIN CHLORIDE [Concomitant]
  5. PLAVIX [Concomitant]
  6. LEVOTHYROXINE SODIUM [Concomitant]
  7. ASPIRIN [Concomitant]
  8. UNKNOWN MEDICATION [Concomitant]
  9. BUSPIRONE HCL [Concomitant]

REACTIONS (4)
  - DRUG EFFECT DECREASED [None]
  - DRUG INEFFECTIVE [None]
  - HYPERSOMNIA [None]
  - INSOMNIA [None]
